FAERS Safety Report 11585834 (Version 2)
Quarter: 2015Q4

REPORT INFORMATION
  Report Type: Report from Study
  Country: US (occurrence: US)
  Receive Date: 20151001
  Receipt Date: 20151021
  Transmission Date: 20160304
  Serious: Yes (Life-Threatening, Hospitalization)
  Sender: FDA-Public Use
  Company Number: US-SA-2015SA145236

PATIENT
  Age: 50 Year
  Sex: Female

DRUGS (7)
  1. PLAVIX [Concomitant]
     Active Substance: CLOPIDOGREL BISULFATE
  2. METOPROLOL [Concomitant]
     Active Substance: METOPROLOL
  3. PRALUENT [Suspect]
     Active Substance: ALIROCUMAB
     Indication: HYPERLIPIDAEMIA
     Dosage: FREQUENCY: EVERY 2 WEEKS.
     Route: 065
     Dates: start: 20150916
  4. ALIROCUMAB PREFILLED PEN [Concomitant]
     Indication: HYPERLIPIDAEMIA
     Dosage: FREQUENCY: EVERY 2 WEEKS.
     Route: 065
     Dates: start: 20150916
  5. PRALUENT [Suspect]
     Active Substance: ALIROCUMAB
     Indication: HYPERCHOLESTEROLAEMIA
     Dosage: FREQUENCY: EVERY 2 WEEKS.
     Route: 065
     Dates: start: 20150916
  6. PRALUENT [Suspect]
     Active Substance: ALIROCUMAB
     Indication: ARTERIOSCLEROSIS CORONARY ARTERY
     Dosage: FREQUENCY: EVERY 2 WEEKS.
     Route: 065
     Dates: start: 20150916
  7. XANAX [Concomitant]
     Active Substance: ALPRAZOLAM

REACTIONS (3)
  - Myocardial infarction [Unknown]
  - Blood pressure increased [Recovered/Resolved]
  - Contusion [Unknown]

NARRATIVE: CASE EVENT DATE: 20150916
